FAERS Safety Report 21347725 (Version 2)
Quarter: 2022Q4

REPORT INFORMATION
  Report Type: Report from Study
  Country: US (occurrence: US)
  Receive Date: 20220919
  Receipt Date: 20221004
  Transmission Date: 20230112
  Serious: No
  Sender: FDA-Public Use
  Company Number: US-SA-SAC20220914001654

PATIENT
  Age: 50 Year
  Sex: Male

DRUGS (5)
  1. TERIFLUNOMIDE [Suspect]
     Active Substance: TERIFLUNOMIDE
     Indication: Multiple sclerosis
     Dosage: 14 MG, QD
     Route: 048
     Dates: start: 20180511
  2. ATORVASTATIN [Concomitant]
     Active Substance: ATORVASTATIN
  3. BACLOFEN [Concomitant]
     Active Substance: BACLOFEN
  4. TYLENOL [Concomitant]
     Active Substance: ACETAMINOPHEN
  5. ALEVE [Concomitant]
     Active Substance: NAPROXEN SODIUM

REACTIONS (2)
  - Throat clearing [Unknown]
  - Memory impairment [Unknown]
